FAERS Safety Report 5672804-9 (Version None)
Quarter: 2008Q1

REPORT INFORMATION
  Report Type: 
  Country: None (occurrence: None)
  Receive Date: 20080319
  Receipt Date: 20070716
  Transmission Date: 20080703
  Serious: No
  Sender: FDA-Public Use
  Company Number: US-KINGPHARMUSA00001-K200700897

PATIENT

DRUGS (3)
  1. ALTACE [Suspect]
     Indication: HYPERTENSION
     Dosage: UNK, QD
     Route: 048
     Dates: start: 20070301, end: 20070501
  2. XANAX [Concomitant]
     Dosage: 1.25 MG, BID
     Route: 048
  3. ASPIRIN [Concomitant]
     Dosage: UNK, BID
     Route: 048

REACTIONS (2)
  - DRUG INEFFECTIVE [None]
  - HEADACHE [None]
